FAERS Safety Report 13366532 (Version 2)
Quarter: 2017Q2

REPORT INFORMATION
  Report Type: Spontaneous
  Country: AU (occurrence: AU)
  Receive Date: 20170323
  Receipt Date: 20170410
  Transmission Date: 20170830
  Serious: Yes (Other)
  Sender: FDA-Public Use
  Company Number: AU-ABBVIE-17P-008-1903525-00

PATIENT
  Age: 71 Year
  Sex: Male

DRUGS (1)
  1. DUODOPA [Suspect]
     Active Substance: CARBIDOPA\LEVODOPA
     Indication: PARKINSON^S DISEASE
     Dosage: 16 HOUR INFUSION
     Route: 050
     Dates: start: 20170225

REACTIONS (7)
  - Aggression [Unknown]
  - Somnolence [Unknown]
  - Mobility decreased [Unknown]
  - Sexually inappropriate behaviour [Unknown]
  - Aggression [Not Recovered/Not Resolved]
  - Hallucination [Unknown]
  - Aggression [Unknown]

NARRATIVE: CASE EVENT DATE: 20170307
